FAERS Safety Report 7345077-9 (Version None)
Quarter: 2011Q1

REPORT INFORMATION
  Report Type: 
  Country: None (occurrence: None)
  Receive Date: 20110310
  Receipt Date: 20110302
  Transmission Date: 20110831
  Serious: Yes (Other)
  Sender: FDA-Public Use
  Company Number: US-CEPHALON-2011000638

PATIENT
  Sex: Female

DRUGS (2)
  1. PROVIGIL [Suspect]
     Route: 048
  2. NUVIGIL [Suspect]
     Route: 048
     Dates: start: 20110202, end: 20110205

REACTIONS (1)
  - MOUTH ULCERATION [None]
